FAERS Safety Report 6145031-9 (Version None)
Quarter: 2009Q2

REPORT INFORMATION
  Report Type: 
  Country: None (occurrence: None)
  Receive Date: 20090402
  Receipt Date: 20090209
  Transmission Date: 20091009
  Serious: No
  Sender: FDA-Public Use
  Company Number: 1000003871

PATIENT
  Age: 81 Year
  Sex: Female

DRUGS (3)
  1. BYSTOLIC [Suspect]
     Indication: ATRIAL FIBRILLATION
     Dosage: 2.5 MG (2.5 MG, 1 IN 1 D), ORAL
     Route: 048
     Dates: start: 20081208
  2. BYSTOLIC [Suspect]
     Indication: HYPERTENSION
     Dosage: 2.5 MG (2.5 MG, 1 IN 1 D), ORAL
     Route: 048
     Dates: start: 20081208
  3. NORVASC [Concomitant]

REACTIONS (3)
  - DYSPEPSIA [None]
  - GLOSSODYNIA [None]
  - TONGUE DISORDER [None]
